FAERS Safety Report 4984258-6 (Version None)
Quarter: 2006Q2

REPORT INFORMATION
  Report Type: 
  Country: None (occurrence: None)
  Receive Date: 20060427
  Receipt Date: 20060420
  Transmission Date: 20061013
  Serious: Yes (Hospitalization, Other)
  Sender: FDA-Public Use
  Company Number: PHEH2006US05195

PATIENT
  Age: 37 Year
  Sex: Male

DRUGS (1)
  1. EXJADE [Suspect]
     Indication: BLOOD IRON INCREASED
     Dosage: 1250 MG, QD
     Route: 048
     Dates: start: 20060330

REACTIONS (3)
  - BLOOD IRON DECREASED [None]
  - DIFFICULTY IN WALKING [None]
  - HEPATIC CIRRHOSIS [None]
